FAERS Safety Report 4710506-3 (Version None)
Quarter: 2005Q3

REPORT INFORMATION
  Report Type: 
  Country: None (occurrence: None)
  Receive Date: 20050711
  Receipt Date: 20050628
  Transmission Date: 20060218
  Serious: Yes (Other)
  Sender: FDA-Public Use
  Company Number: PHHO2005GB10457

PATIENT
  Age: 0 Day

DRUGS (2)
  1. SYNTOCINON [Suspect]
     Dosage: UNK, UNK
     Route: 064
     Dates: start: 20050613
  2. MISOPROSTOL [Suspect]
     Route: 064

REACTIONS (2)
  - DRUG EXPOSURE DURING PREGNANCY [None]
  - FOETAL HEART RATE DECELERATION [None]
